FAERS Safety Report 7059944-7 (Version None)
Quarter: 2010Q4

REPORT INFORMATION
  Report Type: 
  Country: None (occurrence: None)
  Receive Date: 20101025
  Receipt Date: 20101014
  Transmission Date: 20110411
  Serious: Yes (Other)
  Sender: FDA-Public Use
  Company Number: GB-TEVA-252274ISR

PATIENT
  Sex: Male

DRUGS (3)
  1. ROPINIROLE [Suspect]
     Indication: PARKINSON'S DISEASE
  2. CARBIDOPA W/ENTACAPONE W/LEVODOPA [Interacting]
     Indication: PARKINSON'S DISEASE
  3. SILDENAFIL CITRATE [Interacting]
     Indication: ERECTILE DYSFUNCTION

REACTIONS (2)
  - DRUG INTERACTION [None]
  - PARKINSON'S DISEASE [None]
